FAERS Safety Report 16277951 (Version 3)
Quarter: 2019Q3

REPORT INFORMATION
  Report Type: Spontaneous
  Country: US (occurrence: US)
  Receive Date: 20190506
  Receipt Date: 20190919
  Transmission Date: 20191004
  Serious: No
  Sender: FDA-Public Use
  Company Number: US-GLAXOSMITHKLINE-US2019075952

PATIENT
  Sex: Male

DRUGS (3)
  1. LAMICTAL [Suspect]
     Active Substance: LAMOTRIGINE
     Indication: SEIZURE
     Dosage: 100 MG, BID
     Route: 048
  2. LAMOTRIGINE TABLET [Suspect]
     Active Substance: LAMOTRIGINE
     Indication: GENERALISED TONIC-CLONIC SEIZURE
     Dosage: 100 MG, QID
     Route: 065
  3. LAMICTAL [Suspect]
     Active Substance: LAMOTRIGINE
     Indication: GENERALISED TONIC-CLONIC SEIZURE

REACTIONS (11)
  - Product dispensing error [Unknown]
  - Product complaint [Unknown]
  - Alopecia [Unknown]
  - Blister [Unknown]
  - Rash [Recovered/Resolved]
  - Skin disorder [Unknown]
  - Product substitution issue [Unknown]
  - Urticaria [Unknown]
  - Fatigue [Recovered/Resolved]
  - Nightmare [Unknown]
  - Drug ineffective [Unknown]
